FAERS Safety Report 9101353 (Version 3)
Quarter: 2013Q3

REPORT INFORMATION
  Report Type: Spontaneous
  Country: DE (occurrence: DE)
  Receive Date: 20130215
  Receipt Date: 20130718
  Transmission Date: 20140515
  Serious: Yes (Other)
  Sender: FDA-Public Use
  Company Number: DE-INCYTE CORPORATION-2013IN000287

PATIENT
  Sex: Male
  Weight: 74 kg

DRUGS (12)
  1. JAKAVI [Suspect]
     Indication: MYELOFIBROSIS
     Dosage: 15 MG, BID
     Route: 048
     Dates: start: 20121022, end: 20121113
  2. JAKAVI [Suspect]
     Dosage: UNK
     Route: 048
     Dates: start: 20121114, end: 20121128
  3. JAKAVI [Suspect]
     Dosage: 15 MG, QD 0-0-1
     Route: 048
     Dates: start: 20121129, end: 20130423
  4. JAKAVI [Suspect]
     Dosage: 15 MG, NO INTAKE ON SATURDAY AND SUNDAY
     Route: 048
     Dates: start: 20130424
  5. PANTOPRAZOLE [Concomitant]
  6. DELIX [Concomitant]
  7. NEBIVOLOL [Concomitant]
  8. PENTALONG [Concomitant]
  9. ALVESCO [Concomitant]
  10. FALITHROM [Concomitant]
  11. SALBUHEXAL [Concomitant]
  12. HYDREA [Concomitant]

REACTIONS (5)
  - Pneumonia [Recovered/Resolved]
  - Full blood count decreased [Recovering/Resolving]
  - Dyspnoea [Unknown]
  - Musculoskeletal pain [Not Recovered/Not Resolved]
  - Flatulence [Not Recovered/Not Resolved]
